FAERS Safety Report 4798090-X (Version None)
Quarter: 2005Q4

REPORT INFORMATION
  Report Type: 
  Country: None (occurrence: None)
  Receive Date: 20051006
  Receipt Date: 20051006
  Transmission Date: 20060501
  Serious: Yes (Hospitalization)
  Sender: FDA-Public Use
  Company Number: None

PATIENT
  Sex: Female
  Weight: 115 kg

DRUGS (1)
  1. PREDNISONE 50MG TAB [Suspect]
     Indication: ASTHMA
     Dosage: 50 MG DAILY
     Dates: start: 20041027, end: 20041102

REACTIONS (6)
  - BLOOD GLUCOSE INCREASED [None]
  - DRY MOUTH [None]
  - HYPERPHAGIA [None]
  - POLYDIPSIA [None]
  - POLYURIA [None]
  - TREATMENT NONCOMPLIANCE [None]
